FAERS Safety Report 8434379-0 (Version None)
Quarter: 2012Q2

REPORT INFORMATION
  Report Type: 
  Country: None (occurrence: None)
  Receive Date: 20120613
  Receipt Date: 20120604
  Transmission Date: 20120825
  Serious: Yes (Hospitalization, Other)
  Sender: FDA-Public Use
  Company Number: AU-B.I. PHARMACEUTICALS,INC./RIDGEFIELD-2012-EU-02996GD

PATIENT
  Age: 63 Year
  Sex: Male

DRUGS (1)
  1. PRAMIPEXOLE [Suspect]
     Indication: PARKINSON'S DISEASE
     Dosage: MULTIPLE DOSE ADJUSTMENTS

REACTIONS (7)
  - URINARY RETENTION [None]
  - PENILE SWELLING [None]
  - HYPERSEXUALITY [None]
  - EMOTIONAL DISTRESS [None]
  - CHOREA [None]
  - PENIS DISORDER [None]
  - PENIS INJURY [None]
